FAERS Safety Report 10355937 (Version 1)
Quarter: 2014Q3

REPORT INFORMATION
  Report Type: Spontaneous
  Country: US (occurrence: US)
  Receive Date: 20140801
  Receipt Date: 20140801
  Transmission Date: 20150326
  Serious: No
  Sender: FDA-Public Use
  Company Number: US-009507513-1407USA012102

PATIENT
  Age: 22 Year
  Sex: Female

DRUGS (1)
  1. NUVARING [Suspect]
     Active Substance: ETHINYL ESTRADIOL\ETONOGESTREL
     Indication: CONTRACEPTION
     Dosage: USED AS DIRECTED IN FOR 3 WEEKS, OUT FOR 1 WEEK
     Dates: start: 2013

REACTIONS (5)
  - Unintended pregnancy [Unknown]
  - Back pain [Unknown]
  - Eating disorder [Unknown]
  - Malaise [Unknown]
  - Scoliosis [Unknown]

NARRATIVE: CASE EVENT DATE: 20131207
